FAERS Safety Report 4373350-5 (Version None)
Quarter: 2004Q2

REPORT INFORMATION
  Report Type: 
  Country: None (occurrence: None)
  Receive Date: 20040603
  Receipt Date: 20040522
  Transmission Date: 20050107
  Serious: Yes (Hospitalization)
  Sender: FDA-Public Use
  Company Number: 163-20785-04050568 (0)

PATIENT
  Age: 46 Year
  Sex: Male

DRUGS (14)
  1. THALOMID [Suspect]
     Indication: MULTIPLE MYELOMA
     Dosage: 200 MG, DAILY; ORAL
     Route: 048
     Dates: start: 20010808, end: 20040519
  2. TYLENOL [Concomitant]
  3. ELAVIL [Concomitant]
  4. BISACODYL (BISACODYL) (SUPPOSITORY) [Concomitant]
  5. CELEXA [Concomitant]
  6. PEPCID [Concomitant]
  7. NEURONTIN [Concomitant]
  8. HEPARIN [Concomitant]
  9. FLAGYL [Concomitant]
  10. MORPHINE [Concomitant]
  11. ZOFRAN [Concomitant]
  12. ZOSYN [Concomitant]
  13. AMBIEN [Concomitant]
  14. DEXTROSE W/POTASSIUM CHLORIDE AND NACL (GALENIC/GLUCOSE/SODIUM CL/POTA [Concomitant]

REACTIONS (1)
  - APPENDICITIS [None]
